FAERS Safety Report 24550005 (Version 2)
Quarter: 2024Q4

REPORT INFORMATION
  Report Type: Report from Study
  Country: US (occurrence: US)
  Receive Date: 20241025
  Receipt Date: 20241210
  Transmission Date: 20250115
  Serious: Yes (Other)
  Sender: ABBVIE
  Company Number: US-ABBVIE-5281300

PATIENT
  Sex: Male

DRUGS (1)
  1. HUMIRA [Suspect]
     Active Substance: ADALIMUMAB
     Indication: Psoriasis
     Dosage: FORM STRENGTH: 40 MILLIGRAMS , CITRATE FREE
     Route: 058

REACTIONS (4)
  - Surgery [Unknown]
  - Hypoacusis [Unknown]
  - Deafness unilateral [Unknown]
  - Speech disorder [Unknown]
